FAERS Safety Report 7573792 (Version 38)
Quarter: 2012Q4

REPORT INFORMATION
  Report Type: 
  Country: CA (occurrence: CA)
  Receive Date: 20100906
  Receipt Date: 20121018
  Transmission Date: 20130627
  Serious: Yes (Death, Hospitalization, Other)
  Sender: FDA-Public Use
  Company Number: PHHY2010CA56004

PATIENT
  Age: 79 Year
  Sex: Female

DRUGS (15)
  1. SANDOSTATIN LAR [Suspect]
     Indication: CARCINOID SYNDROME
     Dosage: 20 mg, QMO
     Route: 030
     Dates: start: 20090713
  2. SANDOSTATIN LAR [Suspect]
     Dosage: 10 mg, UNK
     Route: 030
     Dates: start: 20090713
  3. SANDOSTATIN LAR [Suspect]
     Dosage: 10 mg, Every 10 days
     Route: 030
     Dates: end: 20100922
  4. SANDOSTATIN LAR [Suspect]
     Dosage: 10 mg every other week
     Route: 030
  5. SANDOSTATIN LAR [Suspect]
     Route: 030
     Dates: start: 20101017
  6. SANDOSTATIN LAR [Suspect]
     Dosage: 10 mg, UNK
     Route: 030
     Dates: start: 20101231
  7. SANDOSTATIN LAR [Suspect]
     Dosage: 20 mg, BIW
     Route: 030
  8. SANDOSTATIN LAR [Suspect]
     Dosage: 10 mg, QW
     Route: 030
  9. SANDOSTATIN LAR [Suspect]
     Dosage: 10 mg, UNK
     Route: 030
  10. SANDOSTATIN LAR [Suspect]
     Dosage: 10 mg, weekly
     Route: 030
  11. SANDOSTATIN LAR [Suspect]
     Dosage: 10 mg, QW
     Route: 030
  12. SANDOSTATIN LAR [Suspect]
     Dosage: 10 mg, UNK
     Route: 030
  13. SANDOSTATIN LAR [Suspect]
     Dosage: 10 mg, QW
     Route: 030
  14. SANDOSTATIN LAR [Suspect]
     Dosage: 10 mg every other week
     Route: 030
  15. SANDOSTATIN LAR [Suspect]
     Dosage: 10 mg, Every week
     Route: 030
     Dates: end: 20121005

REACTIONS (38)
  - Death [Fatal]
  - Pallor [Unknown]
  - Dyspnoea [Unknown]
  - Fall [Recovered/Resolved]
  - Cardiac failure [Unknown]
  - Fracture [Recovered/Resolved]
  - Joint injury [Recovered/Resolved]
  - Contusion [Recovered/Resolved]
  - Abasia [Recovered/Resolved]
  - Oedema peripheral [Unknown]
  - Joint swelling [Recovered/Resolved]
  - Abdominal pain [Not Recovered/Not Resolved]
  - Diarrhoea [Recovering/Resolving]
  - Heart rate irregular [Unknown]
  - Pulse pressure decreased [Unknown]
  - Heart rate increased [Unknown]
  - Blood pressure systolic increased [Unknown]
  - Pollakiuria [Unknown]
  - Feeling cold [Unknown]
  - Chills [Unknown]
  - Incorrect dose administered [Unknown]
  - Abdominal discomfort [Unknown]
  - Gastrointestinal sounds abnormal [Unknown]
  - Gastrointestinal motility disorder [Unknown]
  - Fatigue [Not Recovered/Not Resolved]
  - Malaise [Unknown]
  - Neck pain [Recovering/Resolving]
  - Headache [Not Recovered/Not Resolved]
  - Lethargy [Unknown]
  - Abdominal distension [Unknown]
  - Hypophagia [Recovering/Resolving]
  - Skin irritation [Recovering/Resolving]
  - Oral mucosal erythema [Recovering/Resolving]
  - Flushing [Recovering/Resolving]
  - Stomatitis [Unknown]
  - Vomiting [Unknown]
  - Injection site pain [Not Recovered/Not Resolved]
  - Oedema [Unknown]
